FAERS Safety Report 18023389 (Version 1)
Quarter: 2020Q3

REPORT INFORMATION
  Report Type: Report from Study
  Country: IL (occurrence: IL)
  Receive Date: 20200715
  Receipt Date: 20200715
  Transmission Date: 20201103
  Serious: Yes (Death, Hospitalization, Disabling)
  Sender: FDA-Public Use
  Company Number: IL-EMD SERONO-9148155

PATIENT
  Age: 71 Year
  Sex: Female

DRUGS (6)
  1. VITAMIN D                          /00107901/ [Concomitant]
     Active Substance: ERGOCALCIFEROL
     Indication: PRODUCT USED FOR UNKNOWN INDICATION
  2. REBIF [Suspect]
     Active Substance: INTERFERON BETA-1A
     Route: 058
     Dates: end: 20200329
  3. PERPHENAN [Concomitant]
     Indication: PRODUCT USED FOR UNKNOWN INDICATION
  4. REBIF [Suspect]
     Active Substance: INTERFERON BETA-1A
     Indication: PRODUCT USED FOR UNKNOWN INDICATION
     Dosage: TITRATION
     Route: 058
     Dates: start: 20050705
  5. DEKINET                            /00079502/ [Concomitant]
     Indication: PRODUCT USED FOR UNKNOWN INDICATION
  6. BETMIGA [Concomitant]
     Active Substance: MIRABEGRON
     Indication: PRODUCT USED FOR UNKNOWN INDICATION

REACTIONS (6)
  - Bladder catheterisation [Unknown]
  - Disability [Unknown]
  - Necrosis [Fatal]
  - Decubitus ulcer [Fatal]
  - Infected skin ulcer [Fatal]
  - Muscle spasms [Unknown]

NARRATIVE: CASE EVENT DATE: 201912
